FAERS Safety Report 5861280-9 (Version None)
Quarter: 2008Q3

REPORT INFORMATION
  Report Type: 
  Country: None (occurrence: None)
  Receive Date: 20080827
  Receipt Date: 20080403
  Transmission Date: 20090109
  Serious: No
  Sender: FDA-Public Use
  Company Number: US-ABBOTT-08P-163-0445314-00

PATIENT
  Sex: Male
  Weight: 98.972 kg

DRUGS (7)
  1. NIASPAN [Suspect]
     Indication: BLOOD CHOLESTEROL INCREASED
     Route: 048
     Dates: start: 20080330
  2. ACETYLSALICYLIC ACID SRT [Concomitant]
     Indication: STENT PLACEMENT
     Route: 048
  3. ACETAMINOPHEN [Concomitant]
     Indication: MUSCLE SPASMS
     Route: 048
     Dates: start: 20080403, end: 20080403
  4. LEVOTHYROXINE SODIUM [Concomitant]
     Indication: HYPOTHYROIDISM
     Route: 048
  5. RED YEAST RICE [Concomitant]
     Indication: BLOOD CHOLESTEROL INCREASED
     Route: 048
  6. FISH OIL [Concomitant]
     Indication: BLOOD CHOLESTEROL INCREASED
     Route: 048
  7. PANTOPRAZOLE [Concomitant]
     Indication: GASTROOESOPHAGEAL REFLUX DISEASE
     Route: 048

REACTIONS (2)
  - FLUSHING [None]
  - MUSCLE SPASMS [None]
